FAERS Safety Report 9645320 (Version 1)
Quarter: 2013Q4

REPORT INFORMATION
  Report Type: Report from Study
  Country: DE (occurrence: DE)
  Receive Date: 20131025
  Receipt Date: 20131025
  Transmission Date: 20140711
  Serious: Yes (Other)
  Sender: FDA-Public Use
  Company Number: DE-SA-2013SA106249

PATIENT
  Age: 63 Year
  Sex: Male
  Weight: 104 kg

DRUGS (11)
  1. MULTAQ [Suspect]
     Indication: ATRIAL FIBRILLATION
     Route: 048
     Dates: start: 20120419, end: 2013
  2. BETA BLOCKING AGENTS [Concomitant]
     Dates: start: 201203
  3. FACTOR II (PROTHROMBIN) [Concomitant]
     Indication: THROMBOSIS PROPHYLAXIS
     Dates: start: 201203
  4. ALLOPURINOL [Concomitant]
  5. EBRANTIL [Concomitant]
  6. EXFORGE [Concomitant]
     Dosage: DOSAGE: 10/160/25 MG
  7. INEGY [Concomitant]
     Dosage: DOSE: 10/80 MG
  8. PANTOZOL [Concomitant]
  9. OMACOR [Concomitant]
  10. XARELTO [Concomitant]
  11. BISOPROLOL [Concomitant]

REACTIONS (1)
  - Atrial fibrillation [Unknown]
